APPROVED DRUG PRODUCT: METHADONE HYDROCHLORIDE
Active Ingredient: METHADONE HYDROCHLORIDE
Strength: 10MG
Dosage Form/Route: TABLET;ORAL
Application: A088109 | Product #001 | TE Code: AA
Applicant: HIKMA PHARMACEUTICALS USA INC
Approved: Mar 8, 1983 | RLD: No | RS: No | Type: RX